FAERS Safety Report 9044861 (Version 1)
Quarter: 2013Q1

REPORT INFORMATION
  Report Type: Spontaneous
  Country: US (occurrence: US)
  Receive Date: 20130130
  Receipt Date: 20130130
  Transmission Date: 20140127
  Serious: Yes (Hospitalization)
  Sender: FDA-Public Use
  Company Number: US-GLAXOSMITHKLINE-A0791921A

PATIENT
  Age: 67 Year
  Sex: Male

DRUGS (3)
  1. AVANDIA [Suspect]
     Indication: DIABETES MELLITUS
     Dosage: 4MG TWICE PER DAY
     Route: 048
     Dates: start: 200109, end: 200506
  2. AVANDAMET [Suspect]
     Indication: DIABETES MELLITUS
     Route: 048
     Dates: start: 20040724, end: 200505
  3. CELEBREX [Concomitant]

REACTIONS (4)
  - Acute myocardial infarction [Not Recovered/Not Resolved]
  - Cardiomyopathy [Unknown]
  - Hypertension [Unknown]
  - Implantable defibrillator insertion [Unknown]
